FAERS Safety Report 11502716 (Version 1)
Quarter: 2015Q3

REPORT INFORMATION
  Report Type: Spontaneous
  Country: US (occurrence: US)
  Receive Date: 20150914
  Receipt Date: 20150914
  Transmission Date: 20151125
  Serious: Yes (Hospitalization)
  Sender: FDA-Public Use
  Company Number: US-BANPHARM-20154204

PATIENT
  Age: 30 Year
  Sex: Male

DRUGS (1)
  1. LOPERAMIDE UNKNOWN PRODUCT [Suspect]
     Active Substance: LOPERAMIDE
     Indication: DRUG ABUSE
     Dosage: 2MG DF, 200 A DAY,

REACTIONS (3)
  - Drug abuse [Unknown]
  - Ventricular tachycardia [Recovered/Resolved]
  - Ventricular arrhythmia [Recovered/Resolved]
